FAERS Safety Report 24725716 (Version 1)
Quarter: 2024Q4

REPORT INFORMATION
  Report Type: Report from Study
  Country: KR (occurrence: KR)
  Receive Date: 20241212
  Receipt Date: 20241212
  Transmission Date: 20250114
  Serious: Yes (Hospitalization)
  Sender: SUNOVION
  Company Number: KR-BIAL-BIAL-17616

PATIENT

DRUGS (12)
  1. ESLICARBAZEPINE ACETATE [Suspect]
     Active Substance: ESLICARBAZEPINE ACETATE
     Indication: Epilepsy
     Dosage: 300 MILLIGRAM, QD
     Route: 048
     Dates: start: 20240226, end: 20240315
  2. ESLICARBAZEPINE ACETATE [Suspect]
     Active Substance: ESLICARBAZEPINE ACETATE
     Dosage: 400 MILLIGRAM, QD
     Route: 048
     Dates: start: 20240316, end: 20240326
  3. ESLICARBAZEPINE ACETATE [Suspect]
     Active Substance: ESLICARBAZEPINE ACETATE
     Dosage: 500 MILLIGRAM, QD
     Route: 048
     Dates: start: 20240327
  4. DEPAKOTE [Concomitant]
     Active Substance: DIVALPROEX SODIUM
     Indication: Epilepsy
     Dosage: 1 DOSAGE FORM, QD
     Route: 048
     Dates: start: 20240227, end: 20240315
  5. DEPAKOTE [Concomitant]
     Active Substance: DIVALPROEX SODIUM
     Indication: Epilepsy
     Dosage: 2 DOSAGE FORM, QD
     Route: 048
     Dates: start: 20240227, end: 20240315
  6. DEPAKOTE [Concomitant]
     Active Substance: DIVALPROEX SODIUM
     Indication: Epilepsy
     Dosage: 2 DOSAGE FORM, BID
     Route: 048
     Dates: start: 20240225, end: 20240226
  7. MELATONIN [Concomitant]
     Active Substance: MELATONIN
     Indication: Induction of anaesthesia
     Dosage: 5 DOSAGE FORM, QD
     Route: 048
     Dates: start: 20240226, end: 20240226
  8. L-CARN [Concomitant]
     Indication: Prophylaxis
     Dosage: 1.5 MILLILITER, BID
     Route: 048
     Dates: start: 20240226, end: 20240315
  9. L-CARN [Concomitant]
     Dosage: 1.5 MILLILITER, BID
     Route: 048
     Dates: start: 20240226, end: 20240315
  10. L-CARN [Concomitant]
     Indication: Prophylaxis
     Dosage: 1 MILLILITER, BID
     Route: 048
     Dates: start: 20240316
  11. DEPAKOTE [Concomitant]
     Active Substance: DIVALPROEX SODIUM
     Indication: Epilepsy
     Dosage: 1 DOSAGE FORM, BID
     Route: 048
     Dates: start: 20240316, end: 20240326
  12. DEPAKOTE [Concomitant]
     Active Substance: DIVALPROEX SODIUM
     Indication: Epilepsy
     Dosage: 1 DOSAGE FORM, QD
     Route: 048
     Dates: start: 20240327, end: 20240408

REACTIONS (2)
  - Seizure [Recovered/Resolved]
  - Epilepsy [Recovered/Resolved]

NARRATIVE: CASE EVENT DATE: 20240408
